FAERS Safety Report 16345860 (Version 1)
Quarter: 2019Q2

REPORT INFORMATION
  Report Type: Spontaneous
  Country: IT (occurrence: IT)
  Receive Date: 20190523
  Receipt Date: 20190523
  Transmission Date: 20190711
  Serious: Yes (Other)
  Sender: FDA-Public Use
  Company Number: IT-HIKMA PHARMACEUTICALS USA INC.-IT-H14001-19-03354

PATIENT
  Age: 47 Year
  Sex: Female

DRUGS (5)
  1. PENTACOL [Suspect]
     Active Substance: MESALAMINE
     Indication: DIVERTICULITIS
     Route: 048
     Dates: start: 20190429, end: 20190430
  2. CLINDAMICINA FOSFATO HIKMA [Suspect]
     Active Substance: CLINDAMYCIN PHOSPHATE
     Indication: DIVERTICULITIS
     Dosage: IN TOTAL
     Route: 042
     Dates: start: 20190430, end: 20190430
  3. REHYDRATING ELECTROLYTICS [Concomitant]
     Indication: FLUID REPLACEMENT
     Dosage: AS NECESSARY
     Route: 042
     Dates: start: 20190429
  4. PARACETAMOLO S.A.L.F. [Concomitant]
     Indication: PAIN
     Dosage: AS NECESSARY
     Route: 042
     Dates: start: 20190429
  5. SOLU-CORTEF [Concomitant]
     Active Substance: HYDROCORTISONE SODIUM SUCCINATE
     Indication: HYPERSENSITIVITY
     Dosage: IN TOTAL
     Route: 042
     Dates: start: 20190430, end: 20190430

REACTIONS (3)
  - Erythema [Recovering/Resolving]
  - Urticaria [Recovering/Resolving]
  - Eyelid oedema [Recovering/Resolving]

NARRATIVE: CASE EVENT DATE: 20190430
